FAERS Safety Report 21647214 (Version 1)
Quarter: 2022Q4

REPORT INFORMATION
  Report Type: Report from Study
  Country: US (occurrence: US)
  Receive Date: 20221127
  Receipt Date: 20221127
  Transmission Date: 20230113
  Serious: No
  Sender: FDA-Public Use
  Company Number: US-ABBVIE-22K-163-4479186-00

PATIENT
  Age: 34 Year
  Sex: Female

DRUGS (2)
  1. RINVOQ [Suspect]
     Active Substance: UPADACITINIB
     Indication: Product used for unknown indication
     Route: 048
  2. RINVOQ [Suspect]
     Active Substance: UPADACITINIB
     Indication: Product used for unknown indication
     Dosage: START DATE 18 JUL 2022
     Route: 058

REACTIONS (8)
  - COVID-19 [Unknown]
  - Gastrointestinal disorder [Recovered/Resolved]
  - Decreased appetite [Not Recovered/Not Resolved]
  - Liver function test abnormal [Unknown]
  - COVID-19 [Recovered/Resolved]
  - Colitis [Unknown]
  - COVID-19 [Recovered/Resolved]
  - Faecal calprotectin increased [Not Recovered/Not Resolved]

NARRATIVE: CASE EVENT DATE: 20200401
